FAERS Safety Report 25174897 (Version 4)
Quarter: 2025Q3

REPORT INFORMATION
  Report Type: Spontaneous
  Country: EU (occurrence: EU)
  Receive Date: 20250408
  Receipt Date: 20250710
  Transmission Date: 20251020
  Serious: Yes (Other)
  Sender: MYLAN
  Company Number: EU-Accord-475113

PATIENT
  Age: 6 Decade
  Sex: Male

DRUGS (14)
  1. POSACONAZOLE [Interacting]
     Active Substance: POSACONAZOLE
     Indication: Antifungal prophylaxis
     Dosage: 200 MILLIGRAM, Q6H, THROUGH A NASOGASTRIC TUBE
  2. VORICONAZOLE [Suspect]
     Active Substance: VORICONAZOLE
     Indication: Antifungal prophylaxis
     Dosage: 200 MILLIGRAM, QD
  3. TIAPRIDE [Suspect]
     Active Substance: TIAPRIDE
     Indication: Hallucination, visual
     Dosage: UNK, QD (UP TO 225 MG/DAY)
  4. TIAPRIDE [Suspect]
     Active Substance: TIAPRIDE
     Indication: Hallucination, auditory
  5. TIAPRIDE [Suspect]
     Active Substance: TIAPRIDE
     Indication: Hallucination
  6. TIAPRIDE [Suspect]
     Active Substance: TIAPRIDE
     Indication: Persecutory delusion
  7. TIAPRIDE [Suspect]
     Active Substance: TIAPRIDE
     Indication: Behaviour disorder
  8. ISAVUCONAZOLE [Suspect]
     Active Substance: ISAVUCONAZOLE
     Indication: Antifungal prophylaxis
     Dosage: 250 MILLIGRAM, QD
  9. ISAVUCONAZOLE [Suspect]
     Active Substance: ISAVUCONAZOLE
     Dosage: 200 MILLIGRAM, QD
  10. HALOPERIDOL [Interacting]
     Active Substance: HALOPERIDOL
     Indication: Insomnia
     Dosage: 2 MILLIGRAM, PM (AT EVENING)
  11. HALOPERIDOL [Interacting]
     Active Substance: HALOPERIDOL
     Indication: Hallucination, visual
  12. HALOPERIDOL [Interacting]
     Active Substance: HALOPERIDOL
     Indication: Somnambulism
  13. HALOPERIDOL [Interacting]
     Active Substance: HALOPERIDOL
     Indication: Delirium
  14. AMPHOTERICIN B [Concomitant]
     Active Substance: AMPHOTERICIN B
     Indication: Mucormycosis

REACTIONS (13)
  - Hallucination, visual [Recovered/Resolved]
  - Hallucination [Recovered/Resolved]
  - Hallucination, auditory [Recovered/Resolved]
  - Delirium [Recovered/Resolved]
  - Persecutory delusion [Recovered/Resolved]
  - Respiratory acidosis [Unknown]
  - Disorientation [Recovered/Resolved]
  - Somnambulism [Recovered/Resolved]
  - Behaviour disorder [Recovered/Resolved]
  - Insomnia [Recovered/Resolved]
  - Somnolence [Recovered/Resolved]
  - Drug interaction [Unknown]
  - Drug ineffective [Unknown]
